FAERS Safety Report 4414126-X (Version None)
Quarter: 2004Q3

REPORT INFORMATION
  Report Type: 
  Country: None (occurrence: None)
  Receive Date: 20040728
  Receipt Date: 20040721
  Transmission Date: 20050211
  Serious: Yes (Other)
  Sender: FDA-Public Use
  Company Number: 2004-07-0791

PATIENT
  Age: 1 Year
  Sex: Male

DRUGS (2)
  1. DESALEX (DESLORATADINE) SYRUP     LIKE CLARINEX [Suspect]
     Indication: ASTHMA
     Dosage: 0.5MG/DAY ORAL
     Route: 048
     Dates: start: 20040702
  2. AZLAIRE (PRANLUKAST) SYRUP [Suspect]
     Indication: ASTHMA
     Dosage: 50MG/DAY ORAL
     Route: 048
     Dates: start: 20040702, end: 20040712

REACTIONS (3)
  - ERYTHEMA MULTIFORME [None]
  - HYPERSENSITIVITY [None]
  - SKIN LESION [None]
